FAERS Safety Report 4597518-8 (Version None)
Quarter: 2005Q1

REPORT INFORMATION
  Report Type: 
  Country: None (occurrence: None)
  Receive Date: 20050228
  Receipt Date: 20050228
  Transmission Date: 20050727
  Serious: Yes (Other)
  Sender: FDA-Public Use
  Company Number: None

PATIENT
  Sex: Female
  Weight: 109.7705 kg

DRUGS (2)
  1. GABAPENTIN [Suspect]
     Indication: LEG AMPUTATION
     Dosage: 900 MG Q AM AND Q HS; 600 MG Q NOON
     Dates: start: 20041104
  2. GABAPENTIN [Suspect]
     Indication: PHANTOM PAIN
     Dosage: 900 MG Q AM AND Q HS; 600 MG Q NOON
     Dates: start: 20041104

REACTIONS (2)
  - LEG AMPUTATION [None]
  - PHANTOM PAIN [None]
